FAERS Safety Report 12403172 (Version 2)
Quarter: 2018Q2

REPORT INFORMATION
  Report Type: Report from Study
  Country: None (occurrence: DE)
  Receive Date: 20160525
  Receipt Date: 20180517
  Transmission Date: 20180711
  Serious: Yes (Hospitalization, Other)
  Sender: FDA-Public Use
  Company Number: DE-ABBVIE-16K-062-1633644-00

PATIENT
  Age: 53 Year
  Sex: Female
  Weight: 64 kg

DRUGS (3)
  1. HUMIRA [Suspect]
     Active Substance: ADALIMUMAB
     Indication: PRODUCT USED FOR UNKNOWN INDICATION
     Route: 058
     Dates: end: 20180417
  2. HUMIRA [Suspect]
     Active Substance: ADALIMUMAB
     Indication: CROHN^S DISEASE
     Route: 058
     Dates: start: 20151215, end: 20160405
  3. HUMIRA [Suspect]
     Active Substance: ADALIMUMAB
     Route: 058
     Dates: start: 20160503

REACTIONS (6)
  - Sensation of foreign body [Recovered/Resolved]
  - Arthralgia [Recovered/Resolved]
  - Toothache [Recovered/Resolved]
  - Thyroid mass [Recovered/Resolved]
  - White blood cell count decreased [Recovering/Resolving]
  - Facial pain [Recovered/Resolved]

NARRATIVE: CASE EVENT DATE: 201601
